FAERS Safety Report 23938688 (Version 1)
Quarter: 2024Q2

REPORT INFORMATION
  Report Type: Spontaneous
  Country: US (occurrence: US)
  Receive Date: 20240604
  Receipt Date: 20240604
  Transmission Date: 20240716
  Serious: Yes (Other)
  Sender: FDA-Public Use
  Company Number: US-RECKITT-2024-US-031663

PATIENT
  Age: 49 Year
  Sex: Female
  Weight: 67.13 kg

DRUGS (5)
  1. MUCINEX [Suspect]
     Active Substance: GUAIFENESIN
     Indication: Product used for unknown indication
  2. IBUPROFEN [Suspect]
     Active Substance: IBUPROFEN
  3. TYLENOL [Suspect]
     Active Substance: ACETAMINOPHEN
  4. TIZANIDINE [Suspect]
     Active Substance: TIZANIDINE
  5. COSENTYX [Suspect]
     Active Substance: SECUKINUMAB

REACTIONS (4)
  - Systemic scleroderma [Unknown]
  - Trigeminal neuralgia [Unknown]
  - Hidradenitis [Unknown]
  - Traumatic lumbar puncture [Unknown]
